FAERS Safety Report 6163265-4 (Version None)
Quarter: 2009Q2

REPORT INFORMATION
  Report Type: 
  Country: None (occurrence: None)
  Receive Date: 20090420
  Receipt Date: 20090420
  Transmission Date: 20091009
  Serious: Yes (Life-Threatening, Hospitalization)
  Sender: FDA-Public Use
  Company Number: None

PATIENT

DRUGS (1)
  1. DIATRIZOATE [Suspect]
     Dates: start: 20090108, end: 20090108

REACTIONS (1)
  - ANAPHYLACTIC REACTION [None]
